FAERS Safety Report 18703064 (Version 2)
Quarter: 2021Q2

REPORT INFORMATION
  Report Type: Report from Study
  Country: MX (occurrence: MX)
  Receive Date: 20210105
  Receipt Date: 20210428
  Transmission Date: 20210717
  Serious: Yes (Death, Other)
  Sender: FDA-Public Use
  Company Number: NVSC2021MX000752

PATIENT
  Sex: Female
  Weight: 78 kg

DRUGS (2)
  1. KISQALI [Suspect]
     Active Substance: RIBOCICLIB
     Indication: NEOPLASM MALIGNANT
     Dosage: 200 MG, QD
     Route: 065
     Dates: start: 202010
  2. EXFORGE HCT [Suspect]
     Active Substance: AMLODIPINE BESYLATE\HYDROCHLOROTHIAZIDE\VALSARTAN
     Indication: PRODUCT USED FOR UNKNOWN INDICATION
     Dosage: UNK (5/160)
     Route: 065

REACTIONS (8)
  - Breast cancer recurrent [Fatal]
  - Lung disorder [Fatal]
  - Productive cough [Unknown]
  - Pruritus [Unknown]
  - Product use in unapproved indication [Unknown]
  - Pulmonary oedema [Unknown]
  - Rash [Unknown]
  - Gastrooesophageal reflux disease [Unknown]
